FAERS Safety Report 11879685 (Version 3)
Quarter: 2016Q3

REPORT INFORMATION
  Report Type: Spontaneous
  Country: BR (occurrence: BR)
  Receive Date: 20151230
  Receipt Date: 20160724
  Transmission Date: 20161109
  Serious: Yes (Other)
  Sender: FDA-Public Use
  Company Number: BR-ELI_LILLY_AND_COMPANY-BR201512007214

PATIENT
  Age: 74 Year
  Sex: Female
  Weight: 63 kg

DRUGS (7)
  1. FORTEO [Suspect]
     Active Substance: TERIPARATIDE
     Indication: OSTEOPOROSIS
     Dosage: UNK, UNKNOWN
     Route: 058
     Dates: start: 201506
  2. FORTEO [Suspect]
     Active Substance: TERIPARATIDE
     Dosage: UNK, QD
     Route: 058
  3. ANADOR                             /00015901/ [Concomitant]
     Indication: INFLAMMATION
     Dosage: UNK, UNKNOWN
     Route: 065
  4. NIMESULIDA [Concomitant]
     Active Substance: NIMESULIDE
     Dosage: UNK, UNKNOWN
     Route: 065
  5. PYRIDOXAMINE HYDROCHLORIDE\THIAMINE HYDROCHLORIDE\CYANOCOBALAMIN [Concomitant]
     Active Substance: CYANOCOBALAMIN\PYRIDOXAMINE HYDROCHLORIDE\THIAMINE HYDROCHLORIDE
     Dosage: UNK, UNKNOWN
     Route: 065
  6. DIOVAN [Concomitant]
     Active Substance: VALSARTAN
     Indication: HYPERTENSION
     Dosage: UNK, UNKNOWN
     Route: 065
     Dates: start: 2014
  7. VITAMIN D                          /00107901/ [Concomitant]
     Active Substance: ERGOCALCIFEROL
     Dosage: UNK, UNKNOWN
     Route: 065

REACTIONS (19)
  - Pain [Unknown]
  - Joint swelling [Unknown]
  - Injection site pain [Unknown]
  - Drug dose omission [Unknown]
  - Blood uric acid increased [Unknown]
  - Drug ineffective [Unknown]
  - Tachycardia [Unknown]
  - Disorientation [Not Recovered/Not Resolved]
  - Injection site erythema [Unknown]
  - Fall [Unknown]
  - Dizziness [Not Recovered/Not Resolved]
  - Vomiting [Unknown]
  - Erythema [Unknown]
  - Myocardial infarction [Not Recovered/Not Resolved]
  - Arthralgia [Unknown]
  - Varicose vein [Unknown]
  - Hypersensitivity [Unknown]
  - Malaise [Not Recovered/Not Resolved]
  - Peripheral swelling [Unknown]

NARRATIVE: CASE EVENT DATE: 201506
